FAERS Safety Report 10641356 (Version 3)
Quarter: 2015Q2

REPORT INFORMATION
  Report Type: Report from Study
  Country: CA (occurrence: CA)
  Receive Date: 20141209
  Receipt Date: 20150602
  Transmission Date: 20150821
  Serious: Yes (Other)
  Sender: FDA-Public Use
  Company Number: PHHY2013CA074598

PATIENT
  Age: 84 Year
  Sex: Male

DRUGS (4)
  1. ZOMETA [Suspect]
     Active Substance: ZOLEDRONIC ACID
     Indication: PLASMA CELL MYELOMA
     Dosage: 4 MG, QMO, 4 MG (ONCE A MONTH/EVERY 4 WEEKS)
     Route: 042
     Dates: start: 20130705
  2. ZOMETA [Suspect]
     Active Substance: ZOLEDRONIC ACID
     Dosage: 3.5 MG, ONCE
     Route: 042
  3. ZOMETA [Suspect]
     Active Substance: ZOLEDRONIC ACID
     Dosage: 3 MG, EVERY 3 MONTHS
     Route: 042
  4. ZOMETA [Suspect]
     Active Substance: ZOLEDRONIC ACID
     Dosage: 3.5 MG, EVERY 3 MONTHS
     Route: 042

REACTIONS (25)
  - Malaise [Unknown]
  - Haemoglobin decreased [Recovering/Resolving]
  - Eosinophil count decreased [Recovering/Resolving]
  - Confusional state [Unknown]
  - Red blood cell count decreased [Recovering/Resolving]
  - Red cell distribution width increased [Recovering/Resolving]
  - Joint injury [Unknown]
  - Bladder disorder [Unknown]
  - General physical health deterioration [Unknown]
  - Blood pressure systolic increased [Unknown]
  - Pain in extremity [Unknown]
  - Fall [Unknown]
  - Ear injury [Unknown]
  - Head injury [Unknown]
  - Mean cell volume increased [Recovering/Resolving]
  - Haematocrit decreased [Recovering/Resolving]
  - Nausea [Unknown]
  - Asthenia [Unknown]
  - Vascular fragility [Unknown]
  - Lymphocyte count decreased [Recovering/Resolving]
  - Arthralgia [Unknown]
  - Skin abrasion [Unknown]
  - Mean cell haemoglobin increased [Recovering/Resolving]
  - Blood creatinine increased [Unknown]
  - Pain [Unknown]

NARRATIVE: CASE EVENT DATE: 20130705
